FAERS Safety Report 18905129 (Version 1)
Quarter: 2021Q1

REPORT INFORMATION
  Report Type: Other
  Country: US (occurrence: US)
  Receive Date: 20210217
  Receipt Date: 20210217
  Transmission Date: 20210420
  Serious: Yes (Other)
  Sender: FDA-Public Use
  Company Number: US-ROCHE-2771698

PATIENT
  Sex: Female

DRUGS (1)
  1. OCREVUS [Suspect]
     Active Substance: OCRELIZUMAB
     Indication: PRIMARY PROGRESSIVE MULTIPLE SCLEROSIS
     Dosage: ON 20/APR/2018, 19/OCT/2018, 29/APR/2019, 16/SEP/2019, 24/OCT/2019, RECEIVED OCRELIZUMAB OF AN UNKNO
     Route: 042
     Dates: start: 20170929, end: 20200622

REACTIONS (1)
  - Urinary tract infection [Unknown]
